FAERS Safety Report 14046206 (Version 2)
Quarter: 2018Q2

REPORT INFORMATION
  Report Type: Spontaneous
  Country: FR (occurrence: FR)
  Receive Date: 20171005
  Receipt Date: 20180419
  Transmission Date: 20180711
  Serious: Yes (Other)
  Sender: FDA-Public Use
  Company Number: FR-MERCK KGAA-2028876

PATIENT
  Age: 70 Year
  Sex: Female
  Weight: 100 kg

DRUGS (6)
  1. AERIUS [Concomitant]
     Active Substance: DESLORATADINE
  2. VENTOLINE [Concomitant]
     Active Substance: ALBUTEROL
  3. COUMADINE(WARFARIN SODIUM) [Concomitant]
  4. FLECAINE(FLECAINIDE ACETATE) [Concomitant]
  5. NOVOTHYROX [Suspect]
     Active Substance: LEVOTHYROXINE SODIUM
     Indication: THYROIDECTOMY
     Route: 048
     Dates: start: 201704
  6. INNOVAIR(BEKFORM)(BECLOMETASONE DIPROPIONATE, FORMOTEROL FUMARATE) [Concomitant]

REACTIONS (7)
  - Diffuse alopecia [Recovered/Resolved]
  - Fatigue [Not Recovered/Not Resolved]
  - Tachycardia [Not Recovered/Not Resolved]
  - Blood thyroid stimulating hormone normal [Not Recovered/Not Resolved]
  - Weight increased [Recovered/Resolved]
  - Hypertension [Not Recovered/Not Resolved]
  - Nausea [Not Recovered/Not Resolved]

NARRATIVE: CASE EVENT DATE: 201706
